FAERS Safety Report 5465423-0 (Version None)
Quarter: 2007Q3

REPORT INFORMATION
  Report Type: 
  Country: None (occurrence: None)
  Receive Date: 20070920
  Receipt Date: 20070920
  Transmission Date: 20080115
  Serious: No
  Sender: FDA-Public Use
  Company Number: None

PATIENT
  Age: 64 Year
  Sex: Male

DRUGS (2)
  1. TOLTERODINE TARTRATE [Suspect]
     Indication: URGE INCONTINENCE
     Dates: start: 20060701, end: 20070423
  2. OXYBUTYNIN CHLORIDE [Suspect]
     Dates: start: 20060701, end: 20070423

REACTIONS (2)
  - CONFUSIONAL STATE [None]
  - DIZZINESS [None]
